FAERS Safety Report 20779526 (Version 2)
Quarter: 2022Q2

REPORT INFORMATION
  Report Type: Report from Study
  Country: KR (occurrence: KR)
  Receive Date: 20220503
  Receipt Date: 20220505
  Transmission Date: 20220720
  Serious: Yes (Death, Hospitalization, Other)
  Sender: FDA-Public Use
  Company Number: KR-TAKEDA-2022TUS028380

PATIENT
  Age: 67 Year
  Sex: Female
  Weight: 55.3 kg

DRUGS (3)
  1. MOBOCERTINIB [Suspect]
     Active Substance: MOBOCERTINIB
     Indication: Lung neoplasm malignant
     Dosage: 160 MILLIGRAM, QD
     Route: 048
     Dates: start: 20220413, end: 20220425
  2. DEXAMETHASONE [Concomitant]
     Active Substance: DEXAMETHASONE
     Indication: Asthenia
     Dosage: 5 MILLIGRAM, TID
     Route: 042
     Dates: start: 20220413, end: 20220425
  3. NALOXONE HYDROCHLORIDE\OXYCODONE HYDROCHLORIDE [Concomitant]
     Active Substance: NALOXONE HYDROCHLORIDE\OXYCODONE HYDROCHLORIDE
     Indication: Cancer pain
     Dosage: 10 MILLIGRAM, BID
     Route: 048
     Dates: start: 20220411, end: 20220424

REACTIONS (3)
  - Death [Fatal]
  - Somnolence [Fatal]
  - Asthenia [Fatal]

NARRATIVE: CASE EVENT DATE: 20220417
